FAERS Safety Report 16176380 (Version 1)
Quarter: 2019Q2

REPORT INFORMATION
  Report Type: Spontaneous
  Country: US (occurrence: US)
  Receive Date: 20190409
  Receipt Date: 20190409
  Transmission Date: 20190711
  Serious: No
  Sender: FDA-Public Use
  Company Number: US-SA-2019SA098026

PATIENT
  Age: 75 Year
  Sex: Male

DRUGS (2)
  1. TOUJEO [Suspect]
     Active Substance: INSULIN GLARGINE
     Indication: TYPE 2 DIABETES MELLITUS
     Dosage: 22 U, HS
     Route: 065
  2. HUMALOG [Concomitant]
     Active Substance: INSULIN LISPRO

REACTIONS (7)
  - Nasopharyngitis [Recovered/Resolved]
  - Condition aggravated [Recovered/Resolved]
  - Slow speech [Recovered/Resolved]
  - Injection site pain [Recovered/Resolved]
  - Product storage error [Unknown]
  - Influenza [Recovered/Resolved]
  - Nasal congestion [Recovered/Resolved]
